FAERS Safety Report 10612855 (Version 1)
Quarter: 2014Q4

REPORT INFORMATION
  Report Type: Spontaneous
  Country: CH (occurrence: CH)
  Receive Date: 20141127
  Receipt Date: 20141127
  Transmission Date: 20150529
  Serious: Yes (Hospitalization)
  Sender: FDA-Public Use
  Company Number: CH-009507513-1411CHE010866

PATIENT
  Age: 53 Year
  Sex: Male

DRUGS (6)
  1. ZOPICLONE [Suspect]
     Active Substance: ZOPICLONE
     Indication: SUICIDE ATTEMPT
     Dosage: UNKNOWN AMOUNT, ONCE
     Route: 048
     Dates: start: 20120305, end: 20120305
  2. LISINOPRIL. [Suspect]
     Active Substance: LISINOPRIL
     Indication: SUICIDE ATTEMPT
     Dosage: UNKNOWN AMOUNT, ONCE
     Route: 048
     Dates: start: 20120305, end: 20120305
  3. EZETROL [Suspect]
     Active Substance: EZETIMIBE
     Indication: SUICIDE ATTEMPT
     Dosage: AN UNKNOWN AMOUNT OF TABLETS
     Route: 048
     Dates: start: 20120305, end: 20120305
  4. METOPROLOL [Suspect]
     Active Substance: METOPROLOL
     Indication: SUICIDE ATTEMPT
     Dosage: RETARD TABLET, 50 DF, ONCE
     Route: 048
     Dates: start: 20120305, end: 20120305
  5. CLOPIDOGREL [Suspect]
     Active Substance: CLOPIDOGREL BISULFATE
     Indication: SUICIDE ATTEMPT
     Dosage: 50 DF, ONCE
     Route: 048
     Dates: start: 20120305, end: 20120305
  6. LORAZEPAM. [Suspect]
     Active Substance: LORAZEPAM
     Indication: SUICIDE ATTEMPT
     Dosage: UNKNOWN AMOUNT, ONCE
     Route: 048
     Dates: start: 20120305, end: 20120305

REACTIONS (2)
  - Toxicity to various agents [Recovered/Resolved]
  - Intentional overdose [Unknown]

NARRATIVE: CASE EVENT DATE: 20120305
